FAERS Safety Report 8551768-4 (Version None)
Quarter: 2012Q3

REPORT INFORMATION
  Report Type: 
  Country: None (occurrence: None)
  Receive Date: 20120730
  Receipt Date: 20120723
  Transmission Date: 20120928
  Serious: Yes (Hospitalization)
  Sender: FDA-Public Use
  Company Number: GB-B.I. PHARMACEUTICALS,INC./RIDGEFIELD-2012-UK-00818UK

PATIENT
  Sex: Male
  Weight: 95 kg

DRUGS (18)
  1. FUROSEMIDE [Concomitant]
     Indication: VENTRICULAR DYSFUNCTION
     Dosage: 20 MG
     Route: 048
     Dates: start: 20120608
  2. IPRATROPIUM BROMIDE [Concomitant]
     Indication: CHRONIC OBSTRUCTIVE PULMONARY DISEASE
     Dosage: 20 MCG
     Route: 055
     Dates: start: 20080101
  3. SODIUM BICARBONATE [Concomitant]
     Dosage: 2 G
     Route: 048
     Dates: start: 20120608
  4. QUININE SULFATE [Concomitant]
     Dosage: 300 MG
     Route: 048
     Dates: start: 20090101
  5. TRAJENTA [Suspect]
     Indication: DIABETES MELLITUS
     Dosage: 5 MG
     Route: 048
     Dates: start: 20120328
  6. AMITRIPTYLINE HYDROCHLORIDE [Concomitant]
     Indication: DIABETIC NEUROPATHY
     Dosage: 25 MG
     Route: 048
     Dates: start: 20070101
  7. GLICLAZIDE [Concomitant]
     Indication: DIABETES MELLITUS
     Dosage: 240 MG
     Route: 048
     Dates: start: 20050101
  8. TRAJENTA [Suspect]
     Indication: RENAL FAILURE
  9. ASPIRIN [Concomitant]
     Dosage: 75 MG
     Route: 048
     Dates: start: 20040101
  10. BISOPROLOL FUMARATE [Concomitant]
     Indication: LEFT VENTRICULAR DYSFUNCTION
     Dosage: 2.5 MG
     Route: 048
     Dates: start: 20120608
  11. VENTOLIN [Concomitant]
     Indication: CHRONIC OBSTRUCTIVE PULMONARY DISEASE
     Dosage: INHALER; 1-2 PUFFS
     Route: 055
     Dates: start: 20100101
  12. BECLOMETHASONE DIPROPIONATE [Concomitant]
     Indication: CHRONIC OBSTRUCTIVE PULMONARY DISEASE
     Dosage: INHALER; 2 PUFFS TWICE A DAY
     Route: 055
     Dates: start: 20080101
  13. SIMVASTATIN [Concomitant]
     Indication: LIPIDS INCREASED
     Dosage: 40 MG
     Route: 048
     Dates: start: 20090101
  14. ACETAMINOPHEN AND CODEINE PHOSPHATE [Concomitant]
     Dosage: 30/500MG, 1-2 TABLETS
     Route: 048
     Dates: start: 20070101
  15. OMEPRAZOLE [Concomitant]
     Dosage: 20 MG
     Route: 048
     Dates: start: 20050101
  16. IMDUR [Concomitant]
     Dosage: 30 MG
     Route: 048
     Dates: start: 20040101
  17. BETNOVATE [Concomitant]
     Dosage: BD
     Route: 061
     Dates: start: 20120101
  18. FOLIC ACID [Concomitant]
     Indication: VITAMIN B12 DEFICIENCY
     Dosage: 5 MG
     Route: 048
     Dates: start: 20060101

REACTIONS (8)
  - GLOMERULAR FILTRATION RATE DECREASED [None]
  - RENAL IMPAIRMENT [None]
  - HYDRONEPHROSIS [None]
  - ANAEMIA [None]
  - DRUG CHEMICAL INCOMPATIBILITY [None]
  - DIZZINESS [None]
  - HYPOTENSION [None]
  - RENAL FAILURE ACUTE [None]
